FAERS Safety Report 5993943-9 (Version None)
Quarter: 2008Q4

REPORT INFORMATION
  Report Type: 
  Country: None (occurrence: None)
  Receive Date: 20081212
  Receipt Date: 20081205
  Transmission Date: 20090506
  Serious: Yes (Hospitalization)
  Sender: FDA-Public Use
  Company Number: A0700843A

PATIENT
  Age: 64 Year
  Sex: Male
  Weight: 77.3 kg

DRUGS (20)
  1. AVANDIA [Suspect]
     Dosage: 8MG PER DAY
     Route: 048
     Dates: start: 20040804, end: 20070301
  2. HUMALOG [Concomitant]
  3. LANTUS [Concomitant]
  4. HUMULIN [Concomitant]
  5. ALTACE [Concomitant]
  6. LOPRESSOR [Concomitant]
  7. PAXIL [Concomitant]
  8. SEROQUEL [Concomitant]
  9. AMBIEN [Concomitant]
  10. SIMVASTATIN [Concomitant]
  11. RAMIPRIL [Concomitant]
  12. GLARGINE [Concomitant]
  13. ASPIRIN [Concomitant]
  14. ZOLPIDEM [Concomitant]
  15. TIOTROPIUM [Concomitant]
  16. NITROGLYCERIN [Concomitant]
  17. AMIODARONE HCL [Concomitant]
  18. FUROSEMIDE [Concomitant]
  19. DIGOXIN [Concomitant]
  20. SEROQUEL [Concomitant]

REACTIONS (5)
  - ACUTE CORONARY SYNDROME [None]
  - ARTERIAL DISORDER [None]
  - CORONARY ARTERY DISEASE [None]
  - MYOCARDIAL INFARCTION [None]
  - PLEURAL EFFUSION [None]
